FAERS Safety Report 4991950-6 (Version None)
Quarter: 2006Q2

REPORT INFORMATION
  Report Type: 
  Country: None (occurrence: None)
  Receive Date: 20060504
  Receipt Date: 20051205
  Transmission Date: 20061013
  Serious: Yes (Hospitalization)
  Sender: FDA-Public Use
  Company Number: US-MERCK-0512USA00638

PATIENT
  Age: 45 Year
  Sex: Male
  Weight: 83 kg

DRUGS (12)
  1. VIOXX [Suspect]
     Indication: SPONDYLITIS
     Route: 048
     Dates: start: 20000530, end: 20040930
  2. VIOXX [Suspect]
     Indication: MONARTHRITIS
     Route: 048
     Dates: start: 20000530, end: 20040930
  3. ENDOCET [Concomitant]
     Route: 065
  4. VICOPROFEN [Concomitant]
     Route: 065
  5. CYCLOBENZAPRINE HYDROCHLORIDE [Concomitant]
     Route: 065
  6. CELEBREX [Concomitant]
     Route: 065
  7. CLINORIL [Concomitant]
     Route: 065
  8. ETODOLAC [Concomitant]
     Route: 065
  9. ADVIL [Concomitant]
     Route: 065
  10. AMITRIPTYLINE HYDROCHLORIDE [Concomitant]
     Route: 065
  11. PREDNISONE [Concomitant]
     Route: 065
  12. PREVACID [Concomitant]
     Route: 065

REACTIONS (12)
  - BLOOD CHOLESTEROL INCREASED [None]
  - CHEST PAIN [None]
  - CORONARY ARTERY DISEASE [None]
  - CORONARY ARTERY STENOSIS [None]
  - DYSPNOEA [None]
  - ELECTROCARDIOGRAM CHANGE [None]
  - HEART RATE IRREGULAR [None]
  - HIGH DENSITY LIPOPROTEIN DECREASED [None]
  - HYPERLIPIDAEMIA [None]
  - LIMB DISCOMFORT [None]
  - MYOCARDIAL INFARCTION [None]
  - OEDEMA PERIPHERAL [None]
